FAERS Safety Report 26052945 (Version 1)
Quarter: 2025Q4

REPORT INFORMATION
  Report Type: Spontaneous
  Country: US (occurrence: US)
  Receive Date: 20251117
  Receipt Date: 20251117
  Transmission Date: 20260117
  Serious: No
  Sender: MAYNE
  Company Number: US-MAYNE PHARMA-2025MYN000398

PATIENT
  Sex: Female

DRUGS (2)
  1. BIJUVA [Suspect]
     Active Substance: ESTRADIOL\PROGESTERONE
     Indication: Product used for unknown indication
     Dosage: UNK
     Route: 065
     Dates: start: 2025
  2. DUPIXENT [Suspect]
     Active Substance: DUPILUMAB
     Indication: Dermatitis atopic
     Dosage: 300 MG QOW DELIVERED VIA SINGLE DOSE PRE-FILLED PEN STRENGTH 300MG/2ML
     Route: 058
     Dates: start: 2025

REACTIONS (2)
  - Pruritus [Unknown]
  - Rash [Unknown]

NARRATIVE: CASE EVENT DATE: 20250101
